FAERS Safety Report 8167108-9 (Version None)
Quarter: 2012Q1

REPORT INFORMATION
  Report Type: 
  Country: None (occurrence: None)
  Receive Date: 20120227
  Receipt Date: 20120220
  Transmission Date: 20120608
  Serious: Yes (Death)
  Sender: FDA-Public Use
  Company Number: JP-SANOFI-AVENTIS-2011SA063961

PATIENT
  Age: 82 Year
  Sex: Male
  Weight: 58.1 kg

DRUGS (3)
  1. GRTPA [Suspect]
     Indication: PLASMINOGEN DECREASED
     Route: 065
     Dates: start: 20110303
  2. PLAVIX [Suspect]
     Indication: STENT PLACEMENT
     Route: 065
     Dates: start: 20100819, end: 20110306
  3. ASPIRIN [Suspect]
     Indication: STENT PLACEMENT
     Route: 065

REACTIONS (3)
  - HYPOTENSION [None]
  - VENOUS HAEMORRHAGE [None]
  - HAEMORRHAGIC CEREBRAL INFARCTION [None]
